FAERS Safety Report 8045048-3 (Version None)
Quarter: 2012Q1

REPORT INFORMATION
  Report Type: 
  Country: None (occurrence: None)
  Receive Date: 20120113
  Receipt Date: 20120110
  Transmission Date: 20120608
  Serious: Yes (Hospitalization, Other)
  Sender: FDA-Public Use
  Company Number: PHHY2011FR37282

PATIENT
  Age: 8 Year
  Sex: Male

DRUGS (1)
  1. ARTEMETHER + BENFLUMETOL [Suspect]
     Indication: MALARIA

REACTIONS (12)
  - ASTHENIA [None]
  - NEUTROPHIL COUNT INCREASED [None]
  - CONJUNCTIVAL PALLOR [None]
  - HAEMOLYSIS [None]
  - PLASMODIUM FALCIPARUM INFECTION [None]
  - HAEMOGLOBIN DECREASED [None]
  - BODY TEMPERATURE INCREASED [None]
  - BLOOD LACTATE DEHYDROGENASE INCREASED [None]
  - LEUKOCYTOSIS [None]
  - JAUNDICE [None]
  - CHROMATURIA [None]
  - ANAEMIA [None]
